FAERS Safety Report 21234443 (Version 1)
Quarter: 2022Q3

REPORT INFORMATION
  Report Type: Report from Study
  Country: NZ (occurrence: NZ)
  Receive Date: 20220820
  Receipt Date: 20220820
  Transmission Date: 20221027
  Serious: Yes (Other)
  Sender: FDA-Public Use
  Company Number: NZ-ABBVIE-22K-118-4490402-00

PATIENT
  Sex: Female

DRUGS (1)
  1. HUMIRA [Suspect]
     Active Substance: ADALIMUMAB
     Indication: Ankylosing spondylitis
     Route: 058
     Dates: start: 20130314

REACTIONS (5)
  - Multiple system atrophy [Not Recovered/Not Resolved]
  - Feeding disorder [Unknown]
  - Bedridden [Unknown]
  - Dysstasia [Unknown]
  - Gait inability [Unknown]

NARRATIVE: CASE EVENT DATE: 20220101
